FAERS Safety Report 26070057 (Version 1)
Quarter: 2025Q4

REPORT INFORMATION
  Report Type: Spontaneous
  Country: US (occurrence: None)
  Receive Date: 20251119
  Receipt Date: 20251119
  Transmission Date: 20260118
  Serious: No
  Sender: FDA-CTU
  Company Number: None

PATIENT
  Age: 65 Year
  Sex: Female
  Weight: 67.5 kg

DRUGS (5)
  1. BONIVA [Suspect]
     Active Substance: IBANDRONATE SODIUM
     Indication: Osteoporosis
     Dates: start: 20251102, end: 20251102
  2. VITAMINS [Concomitant]
     Active Substance: VITAMINS
  3. CALCIUM [Concomitant]
     Active Substance: CALCIUM
  4. Vitamin D Probiotic [Concomitant]
  5. OMEGA 3 [Concomitant]
     Active Substance: CAPSAICIN

REACTIONS (7)
  - Fatigue [None]
  - Pain [None]
  - Hyperhidrosis [None]
  - Vomiting [None]
  - Urinary incontinence [None]
  - Loss of consciousness [None]
  - Headache [None]

NARRATIVE: CASE EVENT DATE: 20251103
